FAERS Safety Report 15500511 (Version 2)
Quarter: 2018Q4

REPORT INFORMATION
  Report Type: Spontaneous
  Country: US (occurrence: US)
  Receive Date: 20181015
  Receipt Date: 20181210
  Transmission Date: 20190205
  Serious: No
  Sender: FDA-Public Use
  Company Number: US-BAYER-2018-189632

PATIENT
  Age: 48 Year
  Sex: Female

DRUGS (2)
  1. BETASERON [Suspect]
     Active Substance: INTERFERON BETA-1B
     Indication: MULTIPLE SCLEROSIS
     Dosage: 0.25 UNK
  2. BETASERON [Suspect]
     Active Substance: INTERFERON BETA-1B
     Indication: MULTIPLE SCLEROSIS
     Dosage: 0.25 MG, UNK
     Dates: start: 20180929

REACTIONS (6)
  - Fatigue [None]
  - Influenza like illness [None]
  - Injection site bruising [None]
  - Injection site erythema [None]
  - Somnolence [None]
  - Depression [None]

NARRATIVE: CASE EVENT DATE: 20181008
